FAERS Safety Report 25241295 (Version 1)
Quarter: 2025Q2

REPORT INFORMATION
  Report Type: Spontaneous
  Country: FR (occurrence: FR)
  Receive Date: 20250425
  Receipt Date: 20250425
  Transmission Date: 20250716
  Serious: Yes (Life-Threatening)
  Sender: PFIZER
  Company Number: None

PATIENT
  Sex: Female

DRUGS (5)
  1. ROCURONIUM BROMIDE [Suspect]
     Active Substance: ROCURONIUM BROMIDE
     Indication: Surgery
     Route: 051
     Dates: start: 20240415, end: 20240415
  2. LIDOCAINE HYDROCHLORIDE [Suspect]
     Active Substance: LIDOCAINE HYDROCHLORIDE
     Indication: Surgery
     Route: 051
     Dates: start: 20240415, end: 20240415
  3. DEXAMETHASONE [Suspect]
     Active Substance: DEXAMETHASONE
     Indication: Surgery
     Route: 051
     Dates: start: 20240415, end: 20240415
  4. REMIFENTANIL HYDROCHLORIDE [Suspect]
     Active Substance: REMIFENTANIL HYDROCHLORIDE
     Indication: Surgery
     Route: 051
     Dates: start: 20240415, end: 20240415
  5. PROPOFOL [Suspect]
     Active Substance: PROPOFOL
     Indication: Surgery
     Route: 051
     Dates: start: 20240415, end: 20240415

REACTIONS (1)
  - Cardio-respiratory arrest [Recovered/Resolved]

NARRATIVE: CASE EVENT DATE: 20240415
